FAERS Safety Report 10145367 (Version 1)
Quarter: 2014Q2

REPORT INFORMATION
  Report Type: Spontaneous
  Country: US (occurrence: US)
  Receive Date: 20140501
  Receipt Date: 20140501
  Transmission Date: 20141212
  Serious: No
  Sender: FDA-Public Use
  Company Number: US-BIOGENIDEC-2014BI037859

PATIENT
  Sex: Female

DRUGS (22)
  1. TECFIDERA [Suspect]
     Indication: PRODUCT USED FOR UNKNOWN INDICATION
     Route: 048
  2. TECFIDERA [Suspect]
     Indication: PRODUCT USED FOR UNKNOWN INDICATION
     Route: 048
  3. KLONOPIN [Concomitant]
  4. ZOLOFT [Concomitant]
  5. VICODIN [Concomitant]
  6. VICODIN [Concomitant]
  7. TRICOR [Concomitant]
  8. GLUCOPHAGE [Concomitant]
  9. CLONAZEPAM [Concomitant]
  10. SIMVASTATIN [Concomitant]
  11. NOVOLOG [Concomitant]
  12. LOVAZA [Concomitant]
  13. AMPYRA [Concomitant]
  14. VESICARE [Concomitant]
  15. LORTAB [Concomitant]
  16. MAXZIDE-25 [Concomitant]
  17. ALTACE [Concomitant]
  18. ASA LOW DOSE EC [Concomitant]
  19. VIT B12 [Concomitant]
  20. CALCIUM + VITAMIN D [Concomitant]
  21. FOLIC ACID [Concomitant]
  22. IRON [Concomitant]

REACTIONS (2)
  - Depressed mood [Unknown]
  - Decreased interest [Unknown]
